FAERS Safety Report 20764193 (Version 1)
Quarter: 2022Q2

REPORT INFORMATION
  Report Type: Spontaneous
  Country: US (occurrence: None)
  Receive Date: 20220428
  Receipt Date: 20220428
  Transmission Date: 20220721
  Serious: Yes (Hospitalization)
  Sender: FDA-Public Use
  Company Number: None

PATIENT
  Sex: Male

DRUGS (1)
  1. NORDITROPIN [Suspect]
     Active Substance: SOMATROPIN
     Indication: Short stature
     Dosage: OTHER QUANTITY : 5 MG/1.5ML;?FREQUENCY : AT BEDTIME;?INJECT 0.6MG UNDER THE SKIN (SUBCUTANEOUS  INJE
     Route: 058
     Dates: start: 20220111

REACTIONS (1)
  - Intentional dose omission [None]
